FAERS Safety Report 4445057-7 (Version None)
Quarter: 2004Q3

REPORT INFORMATION
  Report Type: 
  Country: None (occurrence: None)
  Receive Date: 20040903
  Receipt Date: 20040827
  Transmission Date: 20050211
  Serious: Yes (Hospitalization)
  Sender: FDA-Public Use
  Company Number: TAP2004Q01062

PATIENT
  Age: 77 Year
  Sex: Female

DRUGS (8)
  1. PREVACID [Suspect]
     Dosage: 30 MG, 1 IN 1 D, PER ORAL
     Route: 048
  2. PRAVASTATIN SODIUM [Suspect]
     Dosage: 20 MG , 1 IN 1 D, PER ORAL
     Route: 048
  3. PENTOXIFYLLINE [Suspect]
     Dosage: 400 MG , 1 IN 1 D, PER ORAL
     Route: 048
  4. DIGOXIN [Suspect]
     Dosage: 1 DF, 1 IN 1 D,
  5. DIATX (DIAZEPAM) [Suspect]
     Dosage: 1 DF, 1 IN 1 D, PER ORAL
     Route: 048
  6. SENSIPAR [Suspect]
     Indication: HYPERPARATHYROIDISM SECONDARY
     Dosage: 180 MG, 1 IN 1 D, PER ORAL
     Route: 048
     Dates: start: 20030311, end: 20040809
  7. GLIPIZIDE [Concomitant]
  8. TUMS (CALCIUM CARBONATE) [Concomitant]

REACTIONS (4)
  - ARTHRALGIA [None]
  - ASTHENIA [None]
  - HYPOPHOSPHATAEMIA [None]
  - LEUKOPENIA [None]
